FAERS Safety Report 16937602 (Version 1)
Quarter: 2019Q4

REPORT INFORMATION
  Report Type: Spontaneous
  Country: US (occurrence: US)
  Receive Date: 20191018
  Receipt Date: 20191018
  Transmission Date: 20200122
  Serious: Yes (Other)
  Sender: FDA-Public Use
  Company Number: NVSC2019US007221

PATIENT
  Age: 22 Year
  Sex: Female

DRUGS (2)
  1. MYCOPHENOLIC ACID. [Suspect]
     Active Substance: MYCOPHENOLIC ACID
     Indication: PROTEINURIA
  2. MYCOPHENOLIC ACID. [Suspect]
     Active Substance: MYCOPHENOLIC ACID
     Indication: LUPUS NEPHRITIS
     Dosage: UNK
     Route: 065

REACTIONS (3)
  - Maternal exposure during pregnancy [Unknown]
  - Product use in unapproved indication [Unknown]
  - Abortion spontaneous [Unknown]
